FAERS Safety Report 8791598 (Version 2)
Quarter: 2012Q4

REPORT INFORMATION
  Report Type: 
  Country: US (occurrence: US)
  Receive Date: 20120918
  Receipt Date: 20120927
  Transmission Date: 20130627
  Serious: Yes (Life-Threatening, Hospitalization, Other)
  Sender: FDA-Public Use
  Company Number: US-BAYER-2012-096642

PATIENT
  Age: 19 Year
  Sex: Female
  Weight: 63.95 kg

DRUGS (4)
  1. YASMIN [Suspect]
     Indication: CONTRACEPTION
     Dosage: UNK
     Dates: start: 20060509, end: 20071112
  2. YASMIN [Suspect]
     Indication: CONTRACEPTION
     Dosage: UNK
     Dates: start: 20080122, end: 20080711
  3. OCELLA [Suspect]
     Indication: CONTRACEPTION
     Dosage: UNK
     Dates: start: 20080711, end: 20100912
  4. OMEPRAZOLE [Concomitant]
     Dosage: 40 mg, daily

REACTIONS (7)
  - Gallbladder disorder [None]
  - Cholecystitis [None]
  - Injury [None]
  - Pain [None]
  - Anxiety [None]
  - Anhedonia [None]
  - Fear [None]
